FAERS Safety Report 5893279-0 (Version None)
Quarter: 2008Q3

REPORT INFORMATION
  Report Type: 
  Country: None (occurrence: None)
  Receive Date: 20080923
  Receipt Date: 20080912
  Transmission Date: 20090109
  Serious: Yes (Hospitalization)
  Sender: FDA-Public Use
  Company Number: A0748619A

PATIENT
  Age: 62 Year
  Sex: Male
  Weight: 79.5 kg

DRUGS (1)
  1. AVANDIA [Suspect]
     Dosage: 4MG PER DAY
     Route: 048
     Dates: start: 20000101

REACTIONS (1)
  - CEREBROVASCULAR ACCIDENT [None]
